FAERS Safety Report 8911842 (Version 1)
Quarter: 2012Q4

REPORT INFORMATION
  Report Type: 
  Country: BE (occurrence: GH)
  Receive Date: 20121115
  Receipt Date: 20121115
  Transmission Date: 20130627
  Serious: Yes (Other)
  Sender: FDA-Public Use
  Company Number: BE-GLAXOSMITHKLINE-B0833111A

PATIENT
  Age: 23 Year
  Sex: Female
  Weight: 58 kg

DRUGS (5)
  1. MALARONE [Suspect]
     Indication: MALARIA PROPHYLAXIS
     Dosage: 1TAB Per day
     Route: 065
     Dates: start: 20120816, end: 20121021
  2. CHLORZOXAZONE [Concomitant]
     Dates: start: 20120919, end: 20120924
  3. DROTAVERINE [Concomitant]
     Indication: PAIN PROPHYLAXIS
     Dates: start: 20120919, end: 20120924
  4. IMODIUM [Concomitant]
     Indication: DIARRHOEA
     Dates: start: 20120919, end: 20120924
  5. TYPHIM [Concomitant]
     Indication: TYPHOID FEVER

REACTIONS (8)
  - Malaria [Recovered/Resolved]
  - Typhoid fever [Unknown]
  - Drug ineffective [Recovered/Resolved]
  - Pyrexia [Unknown]
  - Hyperhidrosis [Unknown]
  - Diarrhoea [Unknown]
  - Decreased appetite [Unknown]
  - Feeling abnormal [Unknown]
